FAERS Safety Report 8351079-6 (Version None)
Quarter: 2012Q2

REPORT INFORMATION
  Report Type: 
  Country: None (occurrence: None)
  Receive Date: 20120510
  Receipt Date: 20120502
  Transmission Date: 20120825
  Serious: Yes (Hospitalization, Other)
  Sender: FDA-Public Use
  Company Number: US-ASTRAZENECA-2011SE32254

PATIENT
  Age: 54 Year
  Sex: Female

DRUGS (12)
  1. ROLAIDS [Concomitant]
  2. PEPCID [Concomitant]
  3. BONIVA [Concomitant]
     Indication: OSTEOPOROSIS
  4. TOPROL-XL [Concomitant]
     Indication: BLOOD PRESSURE DIASTOLIC INCREASED
  5. NEXIUM [Suspect]
     Indication: GASTROOESOPHAGEAL REFLUX DISEASE
     Route: 048
     Dates: start: 20090801, end: 20110401
  6. NEXIUM [Suspect]
     Route: 048
     Dates: start: 20100507
  7. ALPRAZOLAM [Concomitant]
     Route: 048
     Dates: start: 20100317
  8. NEXIUM [Suspect]
     Indication: DYSPEPSIA
     Route: 048
     Dates: start: 20090801, end: 20110401
  9. NEXIUM [Suspect]
     Route: 048
     Dates: start: 20100507
  10. PROZAC [Concomitant]
     Indication: EMOTIONAL DISTRESS
  11. ASPIRIN [Concomitant]
  12. CLONAZEPAM [Concomitant]
     Indication: EMOTIONAL DISTRESS

REACTIONS (7)
  - OSTEOPOROSIS [None]
  - HAND FRACTURE [None]
  - BONE DISORDER [None]
  - BONE FORMATION DECREASED [None]
  - ARTHRITIS [None]
  - FALL [None]
  - INTERVERTEBRAL DISC PROTRUSION [None]
